FAERS Safety Report 4610056-9 (Version None)
Quarter: 2005Q1

REPORT INFORMATION
  Report Type: 
  Country: None (occurrence: None)
  Receive Date: 20050316
  Receipt Date: 20050310
  Transmission Date: 20050727
  Serious: Yes (Hospitalization)
  Sender: FDA-Public Use
  Company Number: FR-GLAXOSMITHKLINE-B0374212A

PATIENT
  Age: 78 Year
  Sex: Female
  Weight: 75 kg

DRUGS (8)
  1. CLAMOXYL [Suspect]
     Indication: DENTAL CARE
     Dosage: 3G PER DAY
     Route: 048
     Dates: start: 20050224, end: 20050224
  2. PYOSTACINE [Suspect]
     Indication: DENTAL CARE
     Route: 048
     Dates: start: 20050225
  3. KARDEGIC [Concomitant]
     Route: 065
  4. AMARYL [Concomitant]
     Route: 065
  5. PROPRANOLOL HYDROCHLORIDE [Concomitant]
     Indication: HYPERTENSION
     Route: 065
  6. ELUDRIL [Concomitant]
     Route: 048
  7. DIAMICRON [Concomitant]
     Route: 065
  8. ASPEGIC 325 [Concomitant]
     Route: 065

REACTIONS (7)
  - ANAPHYLACTIC SHOCK [None]
  - DYSKINESIA [None]
  - LOSS OF CONSCIOUSNESS [None]
  - MALAISE [None]
  - MYALGIA [None]
  - OVERDOSE [None]
  - PRURITUS [None]
